FAERS Safety Report 4809876-7 (Version None)
Quarter: 2005Q4

REPORT INFORMATION
  Report Type: 
  Country: None (occurrence: None)
  Receive Date: 20051024
  Receipt Date: 20051024
  Transmission Date: 20060501
  Serious: Yes (Hospitalization)
  Sender: FDA-Public Use
  Company Number: None

PATIENT
  Age: 57 Year
  Sex: Male

DRUGS (9)
  1. PACLITAXEL XL DOSE 450MG [Suspect]
     Dates: start: 20050831, end: 20050831
  2. ACETAMINOPHEN 300MG/CODEINE [Concomitant]
  3. DILTIAZEM HCL [Concomitant]
  4. LISINOPRIL [Concomitant]
  5. MIRTAZAPINE [Concomitant]
  6. WARFARIN NA [Concomitant]
  7. ASPIRIN [Concomitant]
  8. METOPROLOL TARTRATE [Concomitant]
  9. NAPROXEN [Concomitant]

REACTIONS (1)
  - RESPIRATORY DISTRESS [None]
